FAERS Safety Report 12422371 (Version 1)
Quarter: 2016Q2

REPORT INFORMATION
  Report Type: Spontaneous
  Country: US (occurrence: US)
  Receive Date: 20160601
  Receipt Date: 20160601
  Transmission Date: 20160815
  Serious: Yes (Hospitalization)
  Sender: FDA-Public Use
  Company Number: US-ASTRAZENECA-2016SE55959

PATIENT
  Age: 24763 Day
  Sex: Female

DRUGS (1)
  1. IRESSA [Suspect]
     Active Substance: GEFITINIB
     Route: 048
     Dates: start: 20151023

REACTIONS (3)
  - Diarrhoea [Unknown]
  - Psoriasis [Unknown]
  - Device related infection [Unknown]

NARRATIVE: CASE EVENT DATE: 20160520
